FAERS Safety Report 11924207 (Version 1)
Quarter: 2016Q1

REPORT INFORMATION
  Report Type: Spontaneous
  Country: US (occurrence: US)
  Receive Date: 20160118
  Receipt Date: 20160118
  Transmission Date: 20160526
  Serious: No
  Sender: FDA-Public Use
  Company Number: US-PERRIGO-15US000151

PATIENT
  Age: 69 Year
  Sex: Female
  Weight: 108.84 kg

DRUGS (3)
  1. CALMOSEPTINE                       /00156514/ [Concomitant]
     Indication: INCONTINENCE
     Dosage: UNK, PRN
     Route: 065
     Dates: start: 20140917
  2. NITROFURAZONE [Concomitant]
     Active Substance: NITROFURAZONE
     Indication: PRODUCT USED FOR UNKNOWN INDICATION
     Dosage: UNK
     Route: 065
     Dates: start: 20141227
  3. TIOCONAZOLE 6.5% 426 [Suspect]
     Active Substance: TIOCONAZOLE
     Indication: VULVOVAGINAL MYCOTIC INFECTION
     Dosage: 300 MG, SINGLE
     Route: 067
     Dates: start: 20141223, end: 20141223

REACTIONS (1)
  - Drug effect incomplete [Unknown]

NARRATIVE: CASE EVENT DATE: 20141227
